FAERS Safety Report 19922735 (Version 3)
Quarter: 2021Q4

REPORT INFORMATION
  Report Type: Spontaneous
  Country: US (occurrence: US)
  Receive Date: 20211006
  Receipt Date: 20211115
  Transmission Date: 20220303
  Serious: Yes (Hospitalization)
  Sender: FDA-Public Use
  Company Number: US-GSKCCFUS-CASE-01183792_AE-69317

PATIENT
  Sex: Male

DRUGS (1)
  1. VENTOLIN HFA [Suspect]
     Active Substance: ALBUTEROL SULFATE
     Indication: Product used for unknown indication
     Dosage: 1 PUFF(S), Z (EVERY 4 HOURS AS NEEDED)

REACTIONS (3)
  - Asthma [Recovered/Resolved]
  - Underdose [Unknown]
  - Product complaint [Unknown]
